FAERS Safety Report 19058107 (Version 1)
Quarter: 2021Q1

REPORT INFORMATION
  Report Type: Spontaneous
  Country: US (occurrence: US)
  Receive Date: 20210324
  Receipt Date: 20210324
  Transmission Date: 20210420
  Serious: No
  Sender: FDA-Public Use
  Company Number: US-TEVA-2021-US-1890285

PATIENT
  Age: 64 Year
  Sex: Female

DRUGS (2)
  1. BUPRENORPHINE. [Suspect]
     Active Substance: BUPRENORPHINE
     Route: 062
     Dates: start: 20210308
  2. BUPRENORPHINE. [Suspect]
     Active Substance: BUPRENORPHINE
     Route: 062
     Dates: start: 20210305

REACTIONS (8)
  - Nausea [Unknown]
  - Vomiting [Recovered/Resolved]
  - Illness [Unknown]
  - Feeling hot [Unknown]
  - Application site erythema [Unknown]
  - Wrong technique in device usage process [Unknown]
  - Application site rash [Unknown]
  - Somnolence [Unknown]

NARRATIVE: CASE EVENT DATE: 20210307
